FAERS Safety Report 5144618-X (Version None)
Quarter: 2006Q4

REPORT INFORMATION
  Report Type: 
  Country: None (occurrence: None)
  Receive Date: 20061031
  Receipt Date: 20061016
  Transmission Date: 20070319
  Serious: Yes (Disabling, Other)
  Sender: FDA-Public Use
  Company Number: 2006RR-04174

PATIENT
  Age: 72 Year
  Sex: Female
  Weight: 70 kg

DRUGS (6)
  1. DILTIAZEM [Suspect]
     Indication: ANGINA PECTORIS
     Dosage: 240 MG, QD, ORAL
     Route: 048
     Dates: start: 20060714, end: 20060728
  2. SIMVASTATIN [Suspect]
     Indication: ANGINA PECTORIS
     Dosage: ORAL
     Route: 048
     Dates: start: 20060714, end: 20060728
  3. ASPIRIN [Concomitant]
  4. LACTULOSE (LACTULOSE) LIQUID [Concomitant]
  5. SALBUTAMOL (SALBUTAMOL) [Concomitant]
  6. SERETIDE [Concomitant]

REACTIONS (3)
  - DERMATITIS ALLERGIC [None]
  - EOSINOPHILIA [None]
  - MALAISE [None]
